FAERS Safety Report 7803861-9 (Version None)
Quarter: 2011Q4

REPORT INFORMATION
  Report Type: 
  Country: None (occurrence: None)
  Receive Date: 20111010
  Receipt Date: 20110927
  Transmission Date: 20120403
  Serious: Yes (Hospitalization, Other)
  Sender: FDA-Public Use
  Company Number: JP-PFIZER INC-2011238756

PATIENT
  Age: 75 Year
  Sex: Male

DRUGS (10)
  1. PROMAC [Concomitant]
     Dosage: UNK
     Dates: end: 20110822
  2. CRESTOR [Concomitant]
     Dosage: UNK
     Dates: end: 20110822
  3. BIOFERMIN [Concomitant]
     Dosage: UNK
     Dates: end: 20110822
  4. ANPLAG [Concomitant]
     Dosage: UNK
     Dates: end: 20110822
  5. HUMALOG [Concomitant]
     Dosage: UNK
     Dates: end: 20110822
  6. TICLOPIDINE HCL [Concomitant]
     Dosage: UNK
     Dates: end: 20110822
  7. MIGLITOL [Suspect]
     Indication: TYPE 2 DIABETES MELLITUS
     Dosage: 50 MG, 3X/DAY
     Route: 048
     Dates: start: 20100911, end: 20110822
  8. OLMESARTAN MEDOXOMIL [Concomitant]
     Dosage: UNK
     Dates: end: 20110822
  9. NORVASC [Concomitant]
     Dosage: UNK
     Dates: end: 20110822
  10. METFORMIN HCL [Concomitant]
     Dosage: UNK
     Dates: end: 20110822

REACTIONS (2)
  - ANAEMIA [None]
  - GASTRIC CANCER [None]
